FAERS Safety Report 10085235 (Version 2)
Quarter: 2015Q2

REPORT INFORMATION
  Report Type: Other
  Country: ES (occurrence: ES)
  Receive Date: 20140417
  Receipt Date: 20150417
  Transmission Date: 20150821
  Serious: Yes (Hospitalization, Other)
  Sender: FDA-Public Use
  Company Number: ES-TAKEDA-2014TUS002902

PATIENT
  Age: 58 Year
  Sex: Male

DRUGS (6)
  1. ADENURIC [Suspect]
     Active Substance: FEBUXOSTAT
     Indication: GOUT
     Dosage: 80 MG, QD
     Route: 048
     Dates: start: 201401, end: 20140222
  2. IMMUNOGLOBULIN G HUMAN [Concomitant]
     Active Substance: HUMAN IMMUNOGLOBULIN G
     Indication: ABO INCOMPATIBILITY
     Dosage: UNK
     Route: 042
     Dates: start: 20140212
  3. BASILIXIMAB [Concomitant]
     Active Substance: BASILIXIMAB
     Route: 042
  4. KINERET [Suspect]
     Active Substance: ANAKINRA
     Indication: GOUT
     Dosage: 14.285 MG, QD
     Route: 058
     Dates: start: 201401, end: 20140222
  5. TACROLIMUS. [Suspect]
     Active Substance: TACROLIMUS
     Indication: PROPHYLAXIS AGAINST TRANSPLANT REJECTION
     Dosage: UNK
     Route: 065
     Dates: start: 20140223, end: 20140225
  6. SIMULECT [Concomitant]
     Active Substance: BASILIXIMAB
     Indication: PROPHYLAXIS AGAINST TRANSPLANT REJECTION
     Dosage: UNK
     Route: 042

REACTIONS (4)
  - Anaemia [Recovering/Resolving]
  - Thrombotic microangiopathy [Recovered/Resolved]
  - Thrombocytopenia [Recovered/Resolved]
  - Transplant rejection [Recovered/Resolved]

NARRATIVE: CASE EVENT DATE: 20140225
